FAERS Safety Report 5687999-0 (Version None)
Quarter: 2008Q1

REPORT INFORMATION
  Report Type: 
  Country: None (occurrence: None)
  Receive Date: 20080328
  Receipt Date: 20061121
  Transmission Date: 20080703
  Serious: Yes (Hospitalization)
  Sender: FDA-Public Use
  Company Number: US-BAYER-US-2006-031425

PATIENT
  Age: 33 Year
  Sex: Female
  Weight: 50 kg

DRUGS (4)
  1. MIRENA [Suspect]
     Indication: CONTRACEPTION
     Route: 015
     Dates: start: 20060825, end: 20061012
  2. VITAMIN CAP [Concomitant]
     Route: 048
  3. CLARITIN [Concomitant]
     Indication: SEASONAL ALLERGY
     Route: 048
  4. RHINOCORT [Concomitant]
     Indication: SEASONAL ALLERGY

REACTIONS (1)
  - UTERINE RUPTURE [None]
